FAERS Safety Report 14174752 (Version 2)
Quarter: 2018Q1

REPORT INFORMATION
  Report Type: Spontaneous
  Country: BR (occurrence: BR)
  Receive Date: 20171109
  Receipt Date: 20180105
  Transmission Date: 20180508
  Serious: Yes (Hospitalization)
  Sender: FDA-Public Use
  Company Number: BR-PFIZER INC-2017466389

PATIENT
  Age: 60 Year
  Sex: Female
  Weight: 42 kg

DRUGS (1)
  1. SUTENT [Suspect]
     Active Substance: SUNITINIB MALATE
     Dosage: UNK, CYCLIC (USING IT FOR 14 DAYS AND PAUSING FOR A WEEK)
     Dates: start: 201710, end: 20171220

REACTIONS (5)
  - Weight decreased [Unknown]
  - Dry skin [Not Recovered/Not Resolved]
  - Muscle atrophy [Unknown]
  - Yellow skin [Not Recovered/Not Resolved]
  - Neoplasm progression [Unknown]

NARRATIVE: CASE EVENT DATE: 2017
